FAERS Safety Report 9742844 (Version 3)
Quarter: 2014Q2

REPORT INFORMATION
  Report Type: Spontaneous
  Country: US (occurrence: US)
  Receive Date: 20131210
  Receipt Date: 20140528
  Transmission Date: 20141212
  Serious: Yes (Hospitalization, Other)
  Sender: FDA-Public Use
  Company Number: US-PFIZER INC-2013347385

PATIENT
  Age: 72 Year
  Sex: Female

DRUGS (1)
  1. REVATIO [Suspect]
     Indication: COR PULMONALE
     Dosage: 20 MG, 3X/DAY
     Dates: start: 20100910

REACTIONS (2)
  - Hip fracture [Unknown]
  - Fall [Unknown]
